FAERS Safety Report 21227788 (Version 2)
Quarter: 2022Q3

REPORT INFORMATION
  Report Type: Spontaneous
  Country: ES (occurrence: ES)
  Receive Date: 20220818
  Receipt Date: 20220826
  Transmission Date: 20221026
  Serious: Yes (Death, Hospitalization, Other)
  Sender: FDA-Public Use
  Company Number: ES-ROCHE-3144977

PATIENT
  Age: 55 Year
  Sex: Female

DRUGS (4)
  1. PREDNISONE [Suspect]
     Active Substance: PREDNISONE
     Indication: Myasthenia gravis
     Dosage: UNK
     Route: 065
  2. CYCLOPHOSPHAMIDE [Suspect]
     Active Substance: CYCLOPHOSPHAMIDE
     Indication: Myasthenia gravis
     Dosage: UNK
     Route: 065
  3. RITUXIMAB [Suspect]
     Active Substance: RITUXIMAB
     Indication: Myasthenia gravis
     Dosage: 375 MILLIGRAM/SQ. METER, QW (AS PER PROTOCOL WEEKLY FOR FOUR CONSECUTIVE WEEKS AND THEN MONTHLY FOR
     Route: 042
  4. RITUXIMAB [Suspect]
     Active Substance: RITUXIMAB
     Dosage: 375 MG/M2 WEEKLY FOR FOUR CONSECUTIVE WEEKS AND THEN MONTHLY FOR THE NEXT TWO MONTHS (NUMBER OF INFU
     Route: 065

REACTIONS (8)
  - Progressive multifocal leukoencephalopathy [Fatal]
  - Cytomegalovirus infection [Fatal]
  - Pneumonia legionella [Fatal]
  - Respiratory failure [Unknown]
  - Hypogammaglobulinaemia [Unknown]
  - Myasthenia gravis [Unknown]
  - Drug effective for unapproved indication [Unknown]
  - Off label use [Unknown]
